FAERS Safety Report 14305391 (Version 1)
Quarter: 2017Q4

REPORT INFORMATION
  Report Type: Spontaneous
  Country: PL (occurrence: PL)
  Receive Date: 20171219
  Receipt Date: 20171219
  Transmission Date: 20180321
  Serious: Yes (Death, Life-Threatening, Hospitalization, Other)
  Sender: FDA-Public Use
  Company Number: PL-OTSUKA-KJ20116525

PATIENT
  Age: 85 Year
  Sex: Male
  Weight: 85 kg

DRUGS (3)
  1. ABILIFY [Suspect]
     Active Substance: ARIPIPRAZOLE
     Indication: SCHIZOPHRENIA
     Dosage: 15 MG IN THE MORNING AND 15 MG IN THE EVENING  LAST DOSE:15MG IN MRNG
     Route: 048
     Dates: start: 20111103, end: 20111210
  2. DEPAKINE [Suspect]
     Active Substance: VALPROATE SODIUM
     Indication: SCHIZOPHRENIA
     Dosage: 2000 MG, UNK
     Route: 065
     Dates: start: 20111103, end: 20111210
  3. LAMITOR [Suspect]
     Active Substance: LAMOTRIGINE
     Indication: SCHIZOPHRENIA
     Dosage: 150 MG, UNK
     Route: 065
     Dates: start: 20111103, end: 20111210

REACTIONS (2)
  - Death [Fatal]
  - Neuroleptic malignant syndrome [Fatal]

NARRATIVE: CASE EVENT DATE: 20111210
